FAERS Safety Report 4401673-X (Version None)
Quarter: 2004Q3

REPORT INFORMATION
  Report Type: 
  Country: None (occurrence: None)
  Receive Date: 20040719
  Receipt Date: 20040716
  Transmission Date: 20050211
  Serious: Yes (Other)
  Sender: FDA-Public Use
  Company Number: US-GLAXOSMITHKLINE-A0518639A

PATIENT
  Age: 69 Year
  Sex: Female

DRUGS (1)
  1. FLOLAN [Suspect]

REACTIONS (2)
  - ASCITES [None]
  - MICROCYTIC ANAEMIA [None]
